FAERS Safety Report 15458086 (Version 2)
Quarter: 2018Q4

REPORT INFORMATION
  Report Type: Spontaneous
  Country: JP (occurrence: JP)
  Receive Date: 20181003
  Receipt Date: 20181004
  Transmission Date: 20190204
  Serious: Yes (Hospitalization)
  Sender: FDA-Public Use
  Company Number: JP-TEVA-2018-JP-001750J

PATIENT

DRUGS (2)
  1. PREDNISOLONE POWDER 1% [Suspect]
     Active Substance: PREDNISOLONE
     Indication: PRODUCT USED FOR UNKNOWN INDICATION
     Dosage: 4 MILLIGRAM DAILY;
     Route: 048
  2. PREDNISOLONE POWDER 1% [Suspect]
     Active Substance: PREDNISOLONE
     Dosage: 3 MILLIGRAM DAILY;
     Route: 048

REACTIONS (1)
  - Dermatomyositis [Unknown]
